FAERS Safety Report 4479605-8 (Version None)
Quarter: 2004Q4

REPORT INFORMATION
  Report Type: 
  Country: None (occurrence: None)
  Receive Date: 20041020
  Receipt Date: 20041014
  Transmission Date: 20050328
  Serious: Yes (Hospitalization)
  Sender: FDA-Public Use
  Company Number: US-BRISTOL-MYERS SQUIBB COMPANY-12732558

PATIENT
  Age: 69 Year
  Sex: Male

DRUGS (6)
  1. CYCLOPHOSPHAMIDE [Suspect]
     Indication: CHRONIC LYMPHOCYTIC LEUKAEMIA
     Dosage: THERAPY DATES: 12-MAR TO 06-JUN-2003
     Route: 042
     Dates: start: 20030606, end: 20030606
  2. FLUDARABINE PHOSPHATE [Suspect]
     Indication: CHRONIC LYMPHOCYTIC LEUKAEMIA
     Dosage: THERAPY DATES: 12-MAR TO 06-JUN-2003
     Route: 042
     Dates: start: 20030606, end: 20030606
  3. CETIRIZINE HCL [Concomitant]
  4. FAMCICLOVIR [Concomitant]
  5. DOLASETRON MESYLATE [Concomitant]
  6. DECONGESTANTS [Concomitant]

REACTIONS (1)
  - CHRONIC OBSTRUCTIVE AIRWAYS DISEASE [None]
